FAERS Safety Report 4782434-9 (Version None)
Quarter: 2005Q3

REPORT INFORMATION
  Report Type: 
  Country: None (occurrence: None)
  Receive Date: 20050929
  Receipt Date: 20041020
  Transmission Date: 20060218
  Serious: No
  Sender: FDA-Public Use
  Company Number: 386144

PATIENT
  Age: 48 Year
  Sex: Female
  Weight: 138.6 kg

DRUGS (6)
  1. COREG [Suspect]
     Dosage: 3.125MG TWICE PER DAY
     Route: 048
     Dates: start: 20040504
  2. LISINOPRIL [Concomitant]
     Dosage: 5MG PER DAY
     Route: 048
  3. LASIX [Concomitant]
     Dosage: 40MG PER DAY
     Route: 065
  4. PREMARIN [Concomitant]
     Dosage: .625MG PER DAY
     Route: 048
  5. PROVERA [Concomitant]
     Dosage: 2.5MG PER DAY
     Route: 048
  6. LIPITOR [Concomitant]
     Dosage: 10MG PER DAY
     Route: 048

REACTIONS (1)
  - HYPOAESTHESIA [None]
